FAERS Safety Report 5949221-7 (Version None)
Quarter: 2008Q4

REPORT INFORMATION
  Report Type: 
  Country: None (occurrence: None)
  Receive Date: 20081111
  Receipt Date: 20081028
  Transmission Date: 20090506
  Serious: Yes (Life-Threatening)
  Sender: FDA-Public Use
  Company Number: CH-GENENTECH-270004

PATIENT
  Sex: Female

DRUGS (6)
  1. BEVACIZUMAB [Suspect]
     Indication: COLORECTAL CANCER
     Dosage: 7.5 MG/KG, ^2 IN 5 WK^
     Route: 042
     Dates: start: 20080702
  2. CETUXIMAB [Suspect]
     Indication: COLORECTAL CANCER
     Dosage: 250 MG/M2, ^1 IN 1 WEEK^
     Route: 042
     Dates: start: 20080702
  3. OXALIPLATIN [Suspect]
     Indication: COLORECTAL CANCER
     Dosage: 70 MG/M2, ^2 IN 5 WK^
     Route: 042
     Dates: start: 20080702
  4. IRINOTECAN HYDROCHLORIDE [Suspect]
     Indication: COLORECTAL CANCER
     Dosage: 100 MG/M2, ^2 IN 5 WK^
     Route: 042
     Dates: start: 20080709
  5. FLUOROURACIL [Suspect]
     Indication: COLORECTAL CANCER
     Dosage: 1500 MG/M2, ^4 IN 5 WK^
     Route: 042
     Dates: start: 20080702
  6. LEUCOVORIN CALCIUM [Suspect]
     Indication: COLORECTAL CANCER
     Dosage: 30 MG, ^4 IN 5 WK^
     Route: 042
     Dates: start: 20080702

REACTIONS (1)
  - HYPOVOLAEMIC SHOCK [None]
